FAERS Safety Report 21682551 (Version 2)
Quarter: 2024Q2

REPORT INFORMATION
  Report Type: Spontaneous
  Country: US (occurrence: US)
  Receive Date: 20221205
  Receipt Date: 20240430
  Transmission Date: 20240716
  Serious: Yes (Other)
  Sender: FDA-Public Use
  Company Number: US-PFIZER INC-PV202200115314

PATIENT
  Age: 73 Year
  Sex: Female

DRUGS (1)
  1. IBRANCE [Suspect]
     Active Substance: PALBOCICLIB
     Indication: Breast cancer metastatic
     Dosage: 1 TAB BY MOUTH DAILY. 21 DAYS ON 7 DAYS OFF
     Route: 048

REACTIONS (1)
  - Mental impairment [Unknown]
